FAERS Safety Report 13125208 (Version 2)
Quarter: 2017Q1

REPORT INFORMATION
  Report Type: Spontaneous
  Country: AU (occurrence: AU)
  Receive Date: 20170118
  Receipt Date: 20170301
  Transmission Date: 20170428
  Serious: Yes (Death, Other)
  Sender: FDA-Public Use
  Company Number: AU-BRISTOL-MYERS SQUIBB COMPANY-BMS-2017-001952

PATIENT
  Age: 47 Year
  Weight: 46 kg

DRUGS (5)
  1. OPDIVO [Suspect]
     Active Substance: NIVOLUMAB
     Indication: NON-SMALL CELL LUNG CANCER
     Dosage: 138 MG, UNK
     Route: 065
     Dates: start: 20160915
  2. OPDIVO [Suspect]
     Active Substance: NIVOLUMAB
     Indication: PRODUCT USED FOR UNKNOWN INDICATION
     Dosage: 126 MG, UNK
     Route: 065
     Dates: start: 20161114
  3. OPDIVO [Suspect]
     Active Substance: NIVOLUMAB
     Indication: PRODUCT USED FOR UNKNOWN INDICATION
     Dosage: 3 MG/KG, Q2WK
     Route: 042
     Dates: start: 20161006, end: 20161215
  4. OPDIVO [Suspect]
     Active Substance: NIVOLUMAB
     Indication: PRODUCT USED FOR UNKNOWN INDICATION
     Dosage: 123 MG, UNK
     Route: 065
     Dates: start: 20161212
  5. OPDIVO [Suspect]
     Active Substance: NIVOLUMAB
     Indication: PRODUCT USED FOR UNKNOWN INDICATION
     Dosage: 138 MG, UNK
     Route: 065
     Dates: start: 20161017

REACTIONS (1)
  - Malignant neoplasm progression [Fatal]
